FAERS Safety Report 8301817-3 (Version None)
Quarter: 2012Q2

REPORT INFORMATION
  Report Type: 
  Country: None (occurrence: None)
  Receive Date: 20120420
  Receipt Date: 20120416
  Transmission Date: 20120825
  Serious: Yes (Hospitalization, Other)
  Sender: FDA-Public Use
  Company Number: DE-ABBOTT-11P-062-0725101-00

PATIENT
  Sex: Male
  Weight: 102 kg

DRUGS (9)
  1. ARAVA [Concomitant]
     Indication: PRODUCT USED FOR UNKNOWN INDICATION
     Dates: start: 20010101
  2. CLOPIDOGREL [Concomitant]
     Indication: PRODUCT USED FOR UNKNOWN INDICATION
     Dosage: 75MG EVERY DAY
     Route: 048
  3. PENTAERYTHRITYLTETRANITRAT [Concomitant]
     Indication: PRODUCT USED FOR UNKNOWN INDICATION
     Dosage: 160MG EVERY DAY
     Route: 048
  4. SIMVASTATIN [Concomitant]
     Indication: PRODUCT USED FOR UNKNOWN INDICATION
     Dosage: 20MG EVERY DAY
     Dates: end: 20110101
  5. PREDNISOLONE [Concomitant]
     Indication: PRODUCT USED FOR UNKNOWN INDICATION
     Dates: end: 20110101
  6. BISOPROLOL FUMARATE [Concomitant]
     Indication: CARDIOVASCULAR DISORDER
     Dosage: 5MG EVERY DAY
     Route: 048
  7. HUMIRA [Suspect]
     Indication: RHEUMATOID ARTHRITIS
     Dosage: 40MG; THERAPY PAUSE
     Route: 058
     Dates: start: 20101201, end: 20110515
  8. HUMIRA [Suspect]
     Route: 058
     Dates: start: 20110822
  9. ACETYLSALICYLIC ACID SRT [Concomitant]
     Indication: PRODUCT USED FOR UNKNOWN INDICATION
     Dosage: 100MG EVERY DAY
     Route: 048

REACTIONS (4)
  - CARDIAC DISORDER [None]
  - CHEST PAIN [None]
  - ANGIOPLASTY [None]
  - ELECTIVE SURGERY [None]
